FAERS Safety Report 6163548-8 (Version None)
Quarter: 2009Q2

REPORT INFORMATION
  Report Type: 
  Country: None (occurrence: None)
  Receive Date: 20090422
  Receipt Date: 20020819
  Transmission Date: 20091009
  Serious: No
  Sender: FDA-Public Use
  Company Number: US-SOLVAY-00202002099

PATIENT
  Age: 397 Month
  Sex: Female

DRUGS (2)
  1. ANDROGEL [Suspect]
     Indication: ACCIDENTAL EXPOSURE
     Dosage: DAILY DOSE: 10 G.
     Route: 062
  2. BIRTH CONTROL PILLS [Concomitant]
     Indication: CONTRACEPTION
     Dosage: DAILY DOSE: 1 DF.
     Route: 048
     Dates: start: 20000101

REACTIONS (1)
  - ALOPECIA [None]
